FAERS Safety Report 5093163-9 (Version None)
Quarter: 2006Q3

REPORT INFORMATION
  Report Type: 
  Country: None (occurrence: None)
  Receive Date: 20060830
  Receipt Date: 20060816
  Transmission Date: 20061208
  Serious: Yes (Other)
  Sender: FDA-Public Use
  Company Number: PHBS2006DK12349

PATIENT
  Age: 55 Year
  Sex: Female

DRUGS (5)
  1. CYCLOSPORINE [Suspect]
     Indication: LYMPHOMA
  2. ETOPOSIDE [Suspect]
     Indication: LYMPHOMA
  3. PREDNISOLONE [Suspect]
     Indication: LYMPHOMA
  4. ADRIAMYCIN [Suspect]
     Indication: LYMPHOMA
  5. ONCOVIN [Suspect]
     Indication: LYMPHOMA

REACTIONS (3)
  - PHLEBITIS [None]
  - RENAL IMPAIRMENT [None]
  - THROMBOPHLEBITIS SUPERFICIAL [None]
